FAERS Safety Report 5274690-8 (Version None)
Quarter: 2007Q1

REPORT INFORMATION
  Report Type: 
  Country: None (occurrence: None)
  Receive Date: 20070320
  Receipt Date: 20070309
  Transmission Date: 20070707
  Serious: Yes (Hospitalization)
  Sender: FDA-Public Use
  Company Number: 2006BI018978

PATIENT
  Age: 28 Year
  Sex: Female

DRUGS (9)
  1. AVONEX [Suspect]
     Indication: MULTIPLE SCLEROSIS
     Dosage: 30 UG; QW; IM
     Route: 030
     Dates: start: 20060210, end: 20060402
  2. AVONEX [Suspect]
     Indication: MULTIPLE SCLEROSIS
     Dosage: 30 UG; QW; IM
     Route: 030
     Dates: start: 20060501
  3. PROVIGIL [Concomitant]
  4. TOPROL-XL [Concomitant]
  5. ALPRAZOLAM [Concomitant]
  6. REMERON [Concomitant]
  7. LOESRIN [Concomitant]
  8. RHINOCORT [Concomitant]
  9. VISTORIL [Concomitant]

REACTIONS (1)
  - INFECTIOUS MONONUCLEOSIS [None]
